FAERS Safety Report 4503616-7 (Version None)
Quarter: 2004Q4

REPORT INFORMATION
  Report Type: 
  Country: None (occurrence: None)
  Receive Date: 20041115
  Receipt Date: 20041108
  Transmission Date: 20050328
  Serious: Yes (Death)
  Sender: FDA-Public Use
  Company Number: HQWYE463830SEP04

PATIENT
  Age: 33 Year
  Sex: Female

DRUGS (3)
  1. ADVIL [Suspect]
     Indication: ABDOMINAL PAIN
     Dosage: ONE 200 MG TAB ORAL
     Route: 048
     Dates: start: 20040928, end: 20040928
  2. VENTOLIN [Concomitant]
  3. COMBIVENT [Concomitant]

REACTIONS (3)
  - ASTHMA [None]
  - CARDIO-RESPIRATORY ARREST [None]
  - HYPERSENSITIVITY [None]
